FAERS Safety Report 4951773-0 (Version None)
Quarter: 2006Q1

REPORT INFORMATION
  Report Type: 
  Country: None (occurrence: None)
  Receive Date: 20060323
  Receipt Date: 20060314
  Transmission Date: 20060701
  Serious: Yes (Other)
  Sender: FDA-Public Use
  Company Number: PHBS2006BR04099

PATIENT
  Age: 14 Year
  Sex: Male

DRUGS (2)
  1. MELLARIL [Concomitant]
     Route: 048
  2. TRILEPTAL [Suspect]
     Indication: EPILEPSY
     Route: 048

REACTIONS (5)
  - AGGRESSION [None]
  - CONDITION AGGRAVATED [None]
  - MENTAL IMPAIRMENT [None]
  - MENTAL RETARDATION SEVERITY UNSPECIFIED [None]
  - NERVOUS SYSTEM DISORDER [None]
